FAERS Safety Report 8392660-8 (Version None)
Quarter: 2012Q2

REPORT INFORMATION
  Report Type: 
  Country: None (occurrence: None)
  Receive Date: 20120529
  Receipt Date: 20120514
  Transmission Date: 20120825
  Serious: Yes (Other)
  Sender: FDA-Public Use
  Company Number: IN-WATSON-2012-08513

PATIENT
  Age: 67 Year
  Sex: Male

DRUGS (2)
  1. CLONAZEPAM [Suspect]
     Indication: INSOMNIA
     Dosage: 0.5 MG, DAILY AT BEDTIME
     Route: 065
  2. ESCITALOPRAM [Suspect]
     Indication: DEPRESSION
     Dosage: 10 MG, DAILY
     Route: 065

REACTIONS (2)
  - DRUG INTERACTION [None]
  - HYPOMANIA [None]
